FAERS Safety Report 6654476-X (Version None)
Quarter: 2010Q1

REPORT INFORMATION
  Report Type: 
  Country: None (occurrence: None)
  Receive Date: 20100326
  Receipt Date: 20100316
  Transmission Date: 20100710
  Serious: Yes (Other)
  Sender: FDA-Public Use
  Company Number: US-PFIZER INC-2010036232

PATIENT
  Sex: Female
  Weight: 71.202 kg

DRUGS (2)
  1. VERAPAMIL HCL [Suspect]
     Indication: SUPRAVENTRICULAR TACHYCARDIA
     Dosage: 240 MG, 1X/DAY
     Dates: start: 19940101
  2. LISINOPRIL [Suspect]
     Indication: HYPERTENSION
     Dosage: 5 MG, 2X/DAY
     Dates: start: 20100101

REACTIONS (3)
  - BLOOD BILIRUBIN INCREASED [None]
  - BLOOD PRESSURE INCREASED [None]
  - CARBON DIOXIDE INCREASED [None]
